FAERS Safety Report 12439729 (Version 3)
Quarter: 2016Q4

REPORT INFORMATION
  Report Type: Spontaneous
  Country: JP (occurrence: JP)
  Receive Date: 20160606
  Receipt Date: 20161028
  Transmission Date: 20170207
  Serious: Yes (Hospitalization, Other)
  Sender: FDA-Public Use
  Company Number: JP-TEVA-2016-JP-001158J

PATIENT
  Age: 75 Year
  Sex: Female
  Weight: 44 kg

DRUGS (6)
  1. AMLODIPINE OD TABLET 5MG ^TEVA^ [Suspect]
     Active Substance: AMLODIPINE BESYLATE
     Indication: HYPERTENSION
     Dosage: 2.5 MILLIGRAM DAILY;
     Route: 048
     Dates: start: 20130808, end: 20140522
  2. BONOTEO [Suspect]
     Active Substance: MINODRONIC ACID
     Indication: OSTEOPOROSIS
     Route: 048
     Dates: start: 20140219, end: 20160511
  3. AMLODIPINE OD TABLET 5MG ^TEVA^ [Suspect]
     Active Substance: AMLODIPINE BESYLATE
     Route: 048
     Dates: start: 20140523, end: 20160511
  4. AMLODIPINE OD TABLET 5MG ^TEVA^ [Suspect]
     Active Substance: AMLODIPINE BESYLATE
     Route: 048
     Dates: start: 201605, end: 20160608
  5. ONGLYZA [Suspect]
     Active Substance: SAXAGLIPTIN HYDROCHLORIDE
     Indication: DIABETES MELLITUS
     Dosage: 5 MILLIGRAM DAILY;
     Route: 048
     Dates: start: 20140511, end: 20160511
  6. AMLODIPINE OD TABLET 5MG ^TEVA^ [Suspect]
     Active Substance: AMLODIPINE BESYLATE
     Dosage: 15 MILLIGRAM DAILY;
     Route: 048
     Dates: start: 20160810, end: 20160915

REACTIONS (7)
  - Blood creatine phosphokinase increased [Recovered/Resolved]
  - Hypokalaemia [Recovered/Resolved]
  - Platelet count decreased [Recovered/Resolved]
  - Depression [Unknown]
  - White blood cell count decreased [Recovered/Resolved]
  - Hepatic function abnormal [Recovered/Resolved]
  - Hypocalcaemia [Recovered/Resolved]

NARRATIVE: CASE EVENT DATE: 201605
